FAERS Safety Report 5810184-6 (Version None)
Quarter: 2008Q3

REPORT INFORMATION
  Report Type: 
  Country: None (occurrence: None)
  Receive Date: 20080709
  Receipt Date: 20080626
  Transmission Date: 20090109
  Serious: Yes (Other)
  Sender: FDA-Public Use
  Company Number: FABR-1000307

PATIENT
  Age: 6 Year
  Sex: Male

DRUGS (1)
  1. FABRAZYME [Suspect]
     Indication: FABRY'S DISEASE
     Dosage: 1 MG/KG, QOW, INTRAVENOUS
     Route: 042
     Dates: start: 20080313

REACTIONS (9)
  - DIARRHOEA [None]
  - DYSPNOEA [None]
  - ERYTHEMA [None]
  - HEADACHE [None]
  - PETECHIAE [None]
  - PYREXIA [None]
  - SWELLING FACE [None]
  - TREMOR [None]
  - VOMITING [None]
